FAERS Safety Report 8756775 (Version 1)
Quarter: 2012Q4

REPORT INFORMATION
  Report Type: 
  Country: US (occurrence: US)
  Receive Date: 20120828
  Receipt Date: 20120828
  Transmission Date: 20130627
  Serious: Yes (Hospitalization)
  Sender: FDA-Public Use
  Company Number: US-SANOFI-AVENTIS-2012SA035581

PATIENT
  Age: 73 Year
  Sex: Female
  Weight: 57 kg

DRUGS (4)
  1. PLAVIX [Suspect]
     Indication: MINISTROKE
     Route: 048
     Dates: start: 2012, end: 2012
  2. ENALAPRIL [Concomitant]
  3. ECOTRIN [Concomitant]
  4. ANTIHYPERTENSIVES [Concomitant]
     Indication: BLOOD PRESSURE ABNORMAL

REACTIONS (5)
  - Headache [Recovered/Resolved]
  - Dizziness [Recovered/Resolved]
  - Malaise [Unknown]
  - Feeling abnormal [Unknown]
  - Confusional state [Unknown]
